FAERS Safety Report 17994797 (Version 3)
Quarter: 2021Q1

REPORT INFORMATION
  Report Type: Spontaneous
  Country: CA (occurrence: CA)
  Receive Date: 20200708
  Receipt Date: 20210222
  Transmission Date: 20210419
  Serious: Yes (Life-Threatening, Hospitalization, Other)
  Sender: FDA-Public Use
  Company Number: CA-TEVA-2020-CA-1797220

PATIENT
  Age: 12 Year
  Sex: Female
  Weight: 52 kg

DRUGS (33)
  1. ACETAMINOPHEN. [Concomitant]
     Active Substance: ACETAMINOPHEN
  2. CALCIUM + VITAMIN D [Concomitant]
     Active Substance: CALCIUM\VITAMIN D
  3. MAGNESIUM [Concomitant]
     Active Substance: MAGNESIUM
  4. MELATONIN [Concomitant]
     Active Substance: MELATONIN
  5. NYSTATIN. [Concomitant]
     Active Substance: NYSTATIN
  6. CEFTAZIDIME. [Concomitant]
     Active Substance: CEFTAZIDIME
  7. LEUCOVORIN. [Concomitant]
     Active Substance: LEUCOVORIN
  8. ONDANSETRON [Concomitant]
     Active Substance: ONDANSETRON
  9. CICLOSPORIN [Concomitant]
     Active Substance: CYCLOSPORINE
  10. EPINEPHRINE. [Concomitant]
     Active Substance: EPINEPHRINE
  11. MORPHINE [Concomitant]
     Active Substance: MORPHINE
  12. ANTI?THYMOCYTE GLOBULIN (RABBIT) NOS [Concomitant]
     Active Substance: LAPINE T-LYMPHOCYTE IMMUNE GLOBULIN
  13. DIMENHYDRINATE. [Concomitant]
     Active Substance: DIMENHYDRINATE
  14. FLUCONAZOLE. [Concomitant]
     Active Substance: FLUCONAZOLE
  15. ACYCLOVIR. [Concomitant]
     Active Substance: ACYCLOVIR
  16. DEXAMETHASONE. [Concomitant]
     Active Substance: DEXAMETHASONE
  17. URSODEOXYCHOLIC ACID [Concomitant]
     Active Substance: URSODIOL
  18. ETOPOSIDE. [Suspect]
     Active Substance: ETOPOSIDE
     Indication: ACUTE LYMPHOCYTIC LEUKAEMIA
     Route: 042
  19. CHLORHEXIDINE [Concomitant]
     Active Substance: CHLORHEXIDINE
  20. DIPHENHYDRAMINE. [Concomitant]
     Active Substance: DIPHENHYDRAMINE
  21. FUROSEMIDE. [Concomitant]
     Active Substance: FUROSEMIDE
  22. HEPARIN CALCIUM [Concomitant]
     Active Substance: HEPARIN CALCIUM
  23. HYDROCORTISONE. [Concomitant]
     Active Substance: HYDROCORTISONE
  24. METHOTREXATE. [Suspect]
     Active Substance: METHOTREXATE
     Indication: ACUTE LYMPHOCYTIC LEUKAEMIA
     Route: 042
  25. AMLODIPINE [Concomitant]
     Active Substance: AMLODIPINE BESYLATE
  26. GABAPENTIN. [Concomitant]
     Active Substance: GABAPENTIN
  27. MOMETASONE FUROATE. [Concomitant]
     Active Substance: MOMETASONE FUROATE
  28. PENTAMIDINE ISETHIONATE INJ 300MG/VIAL BP [Concomitant]
  29. METHYLPREDNISOLONE NOS [Concomitant]
     Active Substance: METHYLPREDNISOLONE
  30. METOCLOPRAMIDE. [Concomitant]
     Active Substance: METOCLOPRAMIDE
  31. NIFEDIPINE. [Concomitant]
     Active Substance: NIFEDIPINE
  32. POLYETHYLENE GLYCOL [Concomitant]
     Active Substance: POLYETHYLENE GLYCOLS
     Route: 065
  33. RANITIDINE. [Concomitant]
     Active Substance: RANITIDINE

REACTIONS (3)
  - Febrile neutropenia [Recovered/Resolved]
  - Aplastic anaemia [Recovered/Resolved]
  - Transfusion [Recovered/Resolved]
